FAERS Safety Report 13031087 (Version 1)
Quarter: 2016Q4

REPORT INFORMATION
  Report Type: Spontaneous
  Country: TR (occurrence: TR)
  Receive Date: 20161215
  Receipt Date: 20161215
  Transmission Date: 20170207
  Serious: Yes (Hospitalization)
  Sender: FDA-Public Use
  Company Number: TR-BAYER-2016-235028

PATIENT
  Sex: Female
  Weight: 98 kg

DRUGS (1)
  1. ADEMPAS [Suspect]
     Active Substance: RIOCIGUAT
     Indication: PULMONARY HYPERTENSION
     Dosage: 2.5 MG, TID
     Route: 048
     Dates: start: 20160310

REACTIONS (4)
  - Dysphagia [None]
  - Dyspnoea [None]
  - Cough [None]
  - Dysphonia [None]

NARRATIVE: CASE EVENT DATE: 20160329
